FAERS Safety Report 9825466 (Version 1)
Quarter: 2014Q1

REPORT INFORMATION
  Report Type: Spontaneous
  Country: US (occurrence: None)
  Receive Date: 20140115
  Receipt Date: 20140115
  Transmission Date: 20141002
  Serious: No
  Sender: FDA-Public Use
  Company Number: None

PATIENT
  Age: 58 Year
  Sex: Male

DRUGS (5)
  1. AFINITOR, 10 MG, NOVARTIS [Suspect]
     Indication: NEOPLASM MALIGNANT
     Route: 048
     Dates: start: 20130618, end: 20130712
  2. IMODIUM [Concomitant]
  3. CLARITIN [Concomitant]
  4. KLORCAN [Concomitant]
  5. LOPERAMIDE [Concomitant]

REACTIONS (1)
  - Disease progression [None]
